FAERS Safety Report 9253895 (Version 1)
Quarter: 2013Q2

REPORT INFORMATION
  Report Type: Spontaneous
  Country: US (occurrence: None)
  Receive Date: 20130422
  Receipt Date: 20130422
  Transmission Date: 20140414
  Serious: Yes (Hospitalization)
  Sender: FDA-Public Use
  Company Number: None

PATIENT
  Age: 65 Year
  Sex: Female
  Weight: 77.11 kg

DRUGS (2)
  1. EFFEXOR [Suspect]
     Indication: ANXIETY
     Dosage: 150 MG  1 DAILY  PO
     Route: 048
     Dates: start: 20130107, end: 20130407
  2. EFFEXOR [Suspect]
     Indication: PANIC ATTACK
     Dosage: 150 MG  1 DAILY  PO
     Route: 048
     Dates: start: 20130107, end: 20130407

REACTIONS (6)
  - Dyskinesia [None]
  - Hypertension [None]
  - Confusional state [None]
  - Loss of consciousness [None]
  - Drug withdrawal syndrome [None]
  - Hallucination [None]
